FAERS Safety Report 6765816-5 (Version None)
Quarter: 2010Q2

REPORT INFORMATION
  Report Type: 
  Country: None (occurrence: None)
  Receive Date: 20100611
  Receipt Date: 20100607
  Transmission Date: 20101027
  Serious: Yes (Death, Hospitalization)
  Sender: FDA-Public Use
  Company Number: FR-ROCHE-707697

PATIENT
  Age: 37 Year
  Sex: Female

DRUGS (12)
  1. VALGANCICLOVIR [Suspect]
     Route: 065
  2. VALGANCICLOVIR [Suspect]
     Dosage: FROM DAY 63 TO 80
     Route: 065
  3. MYCOPHENOLATE MOFETIL [Suspect]
     Route: 065
  4. GANCICLOVIR [Suspect]
     Dosage: DAY 80 TO 97
     Route: 042
  5. VORICONAZOLE [Suspect]
     Indication: PROPHYLAXIS
     Route: 048
     Dates: start: 20060101
  6. TACROLIMUS [Suspect]
     Dosage: THERAPEUTIC RANGE: 12 TO 13.5 NG/ML
     Route: 065
  7. PREDNISONE [Suspect]
     Route: 065
  8. FOSCARNET [Suspect]
     Dosage: FROM DAY 97 TO 115 AND FROM DAY 138 TO 151
     Route: 065
  9. CASPOFUNGIN ACETATE [Suspect]
     Indication: DRUG USE FOR UNKNOWN INDICATION
     Dosage: ON DAY 220, LOADING DOSE
     Route: 065
  10. CASPOFUNGIN ACETATE [Suspect]
     Route: 065
  11. CASPOFUNGIN ACETATE [Suspect]
     Dosage: DOSE INCREASED
     Route: 065
  12. TERBINAFINE [Suspect]
     Indication: DRUG USE FOR UNKNOWN INDICATION
     Route: 065

REACTIONS (10)
  - ASPERGILLOSIS [None]
  - CEREBRAL HAEMORRHAGE [None]
  - CEREBRAL ISCHAEMIA [None]
  - CYTOMEGALOVIRUS INFECTION [None]
  - DRUG INEFFECTIVE [None]
  - FUNGAL ENDOCARDITIS [None]
  - HEMIPLEGIA [None]
  - LEUKOPENIA [None]
  - PSEUDALLESCHERIA INFECTION [None]
  - PYREXIA [None]
